FAERS Safety Report 5663144-2 (Version None)
Quarter: 2008Q1

REPORT INFORMATION
  Report Type: 
  Country: None (occurrence: None)
  Receive Date: 20080313
  Receipt Date: 20080307
  Transmission Date: 20080703
  Serious: Yes (Other)
  Sender: FDA-Public Use
  Company Number: B0512030A

PATIENT
  Age: 69 Year
  Sex: Male
  Weight: 79 kg

DRUGS (2)
  1. AVODART [Suspect]
     Route: 048
     Dates: start: 20080221, end: 20080222
  2. ALFUZOSINE [Suspect]
     Route: 048
     Dates: start: 20080214, end: 20080215

REACTIONS (3)
  - ARTHROPATHY [None]
  - GAIT DISTURBANCE [None]
  - MUSCLE DISORDER [None]
